FAERS Safety Report 14692985 (Version 1)
Quarter: 2018Q1

REPORT INFORMATION
  Report Type: Spontaneous
  Country: US (occurrence: US)
  Receive Date: 20180329
  Receipt Date: 20180329
  Transmission Date: 20180509
  Serious: No
  Sender: FDA-Public Use
  Company Number: US-009507513-1803USA012420

PATIENT
  Sex: Female

DRUGS (4)
  1. VARIVAX [Suspect]
     Active Substance: VARICELLA-ZOSTER VIRUS STRAIN OKA/MERCK LIVE ANTIGEN
     Indication: PROPHYLAXIS
     Route: 030
     Dates: start: 20180210, end: 20180210
  2. VARIVAX [Suspect]
     Active Substance: VARICELLA-ZOSTER VIRUS STRAIN OKA/MERCK LIVE ANTIGEN
     Route: 058
     Dates: start: 20180324, end: 20180324
  3. STERILE DILUENT [Suspect]
     Active Substance: WATER
     Dosage: UNK
     Route: 030
     Dates: start: 20180210
  4. STERILE DILUENT [Suspect]
     Active Substance: WATER
     Dosage: UNK
     Route: 058
     Dates: start: 20180324

REACTIONS (7)
  - Vaccination site warmth [Not Recovered/Not Resolved]
  - Vaccination site pain [Not Recovered/Not Resolved]
  - Incorrect route of drug administration [Unknown]
  - Vaccination site reaction [Not Recovered/Not Resolved]
  - Pyrexia [Not Recovered/Not Resolved]
  - Vaccination site swelling [Not Recovered/Not Resolved]
  - Vaccination site erythema [Not Recovered/Not Resolved]

NARRATIVE: CASE EVENT DATE: 20180210
